FAERS Safety Report 10571596 (Version 2)
Quarter: 2015Q1

REPORT INFORMATION
  Report Type: Other
  Country: IT (occurrence: IT)
  Receive Date: 20141107
  Receipt Date: 20150223
  Transmission Date: 20150720
  Serious: Yes (Hospitalization)
  Sender: FDA-Public Use
  Company Number: IT-MYLANLABS-2014M1009175

PATIENT

DRUGS (3)
  1. SIMVASTATINA [Suspect]
     Active Substance: SIMVASTATIN
     Indication: DYSLIPIDAEMIA
     Dosage: 1 DF, QD
     Route: 048
     Dates: start: 20140504
  2. TERAZOSIN HYDROCHLORIDE. [Suspect]
     Active Substance: TERAZOSIN HYDROCHLORIDE
     Indication: HYPERTENSION
     Dosage: 1 DF, TOTAL
     Route: 048
     Dates: start: 20140504
  3. FOSICOMBI [Suspect]
     Active Substance: FOSINOPRIL SODIUM\HYDROCHLOROTHIAZIDE
     Indication: HYPERTENSION
     Dosage: 1 DF TOTAL
     Route: 048
     Dates: start: 20140504

REACTIONS (1)
  - Lip oedema [Recovered/Resolved]

NARRATIVE: CASE EVENT DATE: 20140504
